FAERS Safety Report 13330208 (Version 5)
Quarter: 2022Q1

REPORT INFORMATION
  Report Type: Spontaneous
  Country: FR (occurrence: FR)
  Receive Date: 20170314
  Receipt Date: 20220216
  Transmission Date: 20220423
  Serious: Yes (Hospitalization, Other)
  Sender: FDA-Public Use
  Company Number: FR-AUROBINDO-AUR-APL-2017-30578

PATIENT
  Age: 14 Year
  Sex: Female
  Weight: 42.5 kg

DRUGS (21)
  1. VORICONAZOLE [Interacting]
     Active Substance: VORICONAZOLE
     Indication: Bronchopulmonary aspergillosis
     Dosage: 7.5 MILLIGRAM/KILOGRAM, TWO TIMES A DAY
     Route: 042
  2. VORICONAZOLE [Interacting]
     Active Substance: VORICONAZOLE
     Dosage: 7.5 MILLIGRAM, TWO TIMES A DAY(7.5 MG, Q12H)
     Route: 048
  3. VORICONAZOLE [Interacting]
     Active Substance: VORICONAZOLE
     Dosage: 15 MILLIGRAM/KILOGRAM, TWO TIMES A DAY(7.5 MG/KG, BID)
     Route: 042
  4. VORICONAZOLE [Interacting]
     Active Substance: VORICONAZOLE
     Dosage: 8.75 MILLIGRAM/KILOGRAM, TWO TIMES A DAY(8.75 MG/KG, Q12H)
     Route: 048
  5. VORICONAZOLE [Interacting]
     Active Substance: VORICONAZOLE
     Dosage: 300 MILLIGRAM
     Route: 042
  6. VINCRISTINE [Interacting]
     Active Substance: VINCRISTINE
     Indication: Acute lymphocytic leukaemia
     Dosage: UNK
     Route: 065
  7. VINCRISTINE [Interacting]
     Active Substance: VINCRISTINE
     Dosage: 2 MILLIGRAM
     Route: 065
  8. AMIKACIN [Concomitant]
     Active Substance: AMIKACIN
     Indication: Product used for unknown indication
     Dosage: UNK(STARTED THE DAY 155)
     Route: 065
  9. AMIKACIN [Concomitant]
     Active Substance: AMIKACIN
     Dosage: UNK(LAST DOSE THE DAY 164)
     Route: 065
  10. AMPHOTERICIN B [Concomitant]
     Active Substance: AMPHOTERICIN B
     Indication: Product used for unknown indication
     Dosage: UNK(STARTED THE DAY 159)
     Route: 065
  11. CASPOFUNGIN [Concomitant]
     Active Substance: CASPOFUNGIN
     Indication: Product used for unknown indication
     Dosage: 50 MILLIGRAM
     Route: 065
  12. FUROSEMIDE [Concomitant]
     Active Substance: FUROSEMIDE
     Indication: Product used for unknown indication
     Dosage: UNK(STARTED THE DAY 159)
     Route: 065
  13. GABAPENTIN [Concomitant]
     Active Substance: GABAPENTIN
     Indication: Product used for unknown indication
     Dosage: UNK(FROM THE DAY 154 TO DAY 164, 400 MG, 8 HOURS)
     Route: 065
  14. GRANULOCYTE COLONY-STIMULATING FACTOR NOS [Concomitant]
     Active Substance: GRANULOCYTE COLONY-STIMULATING FACTOR NOS
     Indication: Product used for unknown indication
     Dosage: UNK(FROM THE DAY 154 TO DAY 164)
     Route: 065
  15. IMIPENEM [Concomitant]
     Active Substance: IMIPENEM
     Indication: Product used for unknown indication
     Dosage: UNK(STARTED THE DAY 155)
     Route: 065
  16. METHOTREXATE [Concomitant]
     Active Substance: METHOTREXATE
     Indication: Product used for unknown indication
     Dosage: 5.5 GRAM PER SQUARE METRE, ONCE A DAY(5. 5 G/M2 OVER 24 HOURS)
     Route: 041
  17. ACETAMINOPHEN [Concomitant]
     Active Substance: ACETAMINOPHEN
     Indication: Product used for unknown indication
     Dosage: UNK(FROM THE DAY 154 TO DAY 164)
     Route: 065
  18. PHLOROGLUCINOL [Concomitant]
     Active Substance: PHLOROGLUCINOL
     Indication: Product used for unknown indication
     Dosage: UNK
     Route: 065
  19. SULFAMETHOXAZOLE [Concomitant]
     Active Substance: SULFAMETHOXAZOLE
     Indication: Product used for unknown indication
     Dosage: UNK(STARTED THE DAY 159)
     Route: 065
  20. TRIMETHOPRIM [Concomitant]
     Active Substance: TRIMETHOPRIM
     Indication: Product used for unknown indication
     Dosage: UNK(STARTED THE DAY 159)
     Route: 065
  21. VANCOMYCIN [Concomitant]
     Active Substance: VANCOMYCIN
     Indication: Product used for unknown indication
     Dosage: UNK(STARTED THE DAY 155)
     Route: 065

REACTIONS (22)
  - Encephalopathy [Recovered/Resolved]
  - Hallucinations, mixed [Recovered/Resolved]
  - Drug interaction [Recovering/Resolving]
  - Inflammation [Recovering/Resolving]
  - Condition aggravated [Recovering/Resolving]
  - Respiratory distress [Recovering/Resolving]
  - Bronchopulmonary aspergillosis [Recovering/Resolving]
  - Neuralgia [Recovering/Resolving]
  - Arthralgia [Unknown]
  - Hepatosplenic candidiasis [Recovering/Resolving]
  - Nervous system disorder [Recovered/Resolved]
  - Disease progression [Recovering/Resolving]
  - Inflammation [Recovered/Resolved]
  - Confusional state [Recovering/Resolving]
  - Disorientation [Recovering/Resolving]
  - Hypoaesthesia [Unknown]
  - Musculoskeletal pain [Unknown]
  - Labelled drug-drug interaction medication error [Recovering/Resolving]
  - Drug level below therapeutic [Recovered/Resolved]
  - Electric shock [Unknown]
  - Drug level increased [Recovered/Resolved]
  - Treatment failure [Unknown]
